FAERS Safety Report 24984770 (Version 2)
Quarter: 2025Q1

REPORT INFORMATION
  Report Type: Spontaneous
  Country: CN (occurrence: CN)
  Receive Date: 20250219
  Receipt Date: 20250320
  Transmission Date: 20250409
  Serious: Yes (Hospitalization, Other)
  Sender: REGENERON
  Company Number: CN-SA-2025SA045710

PATIENT
  Age: 42 Year
  Sex: Male

DRUGS (7)
  1. PRALUENT [Suspect]
     Active Substance: ALIROCUMAB
     Indication: Hyperlipidaemia
     Dosage: 75 MG, QOW (15TH AND THE 30TH OF EVERY MONTH )
     Route: 058
     Dates: start: 20230901, end: 20250130
  2. METFORMIN [Concomitant]
     Active Substance: METFORMIN HYDROCHLORIDE
     Indication: Type 2 diabetes mellitus
  3. METFORMIN [Concomitant]
     Active Substance: METFORMIN HYDROCHLORIDE
  4. ULINASTATIN [Concomitant]
     Active Substance: ULINASTATIN
     Dosage: 100000 U, Q8H
     Dates: start: 202502
  5. INSULIN NOS [Concomitant]
     Active Substance: INSULIN NOS
     Indication: Lipids increased
  6. INSULIN NOS [Concomitant]
     Active Substance: INSULIN NOS
  7. NADROPARIN CALCIUM [Concomitant]
     Active Substance: NADROPARIN CALCIUM
     Indication: Lipids increased
     Dosage: 4100 IU, QD

REACTIONS (8)
  - Pancreatitis [Not Recovered/Not Resolved]
  - Abdominal pain upper [Not Recovered/Not Resolved]
  - Pain [Not Recovered/Not Resolved]
  - Ascites [Not Recovered/Not Resolved]
  - Retroperitoneal effusion [Not Recovered/Not Resolved]
  - Focal peritonitis [Unknown]
  - Pleural effusion [Unknown]
  - Liver disorder [Unknown]

NARRATIVE: CASE EVENT DATE: 20250204
